FAERS Safety Report 10051104 (Version 1)
Quarter: 2014Q2

REPORT INFORMATION
  Report Type: Spontaneous
  Country: FR (occurrence: FR)
  Receive Date: 20140401
  Receipt Date: 20140401
  Transmission Date: 20141212
  Serious: Yes (Hospitalization, Other)
  Sender: FDA-Public Use
  Company Number: FR-PFIZER INC-2014086712

PATIENT
  Age: 36 Year
  Sex: Male

DRUGS (4)
  1. EFFEXOR LP [Suspect]
     Dosage: 75 MG, DAILY
     Route: 048
     Dates: start: 20140203, end: 20140310
  2. XANAX [Suspect]
     Dosage: 2 MG, DAILY
     Route: 048
     Dates: start: 20140203, end: 20140310
  3. BACLOFEN [Suspect]
     Dosage: 130 MG, DAILY
     Route: 048
     Dates: start: 20140203, end: 20140310
  4. OLMETEC [Concomitant]
     Dosage: 40 MG, DAILY
     Route: 048
     Dates: start: 20140203, end: 20140310

REACTIONS (8)
  - Confusional state [Recovered/Resolved]
  - Fall [Recovered/Resolved]
  - Loss of consciousness [Recovered/Resolved]
  - Convulsion [Recovered/Resolved]
  - Blood pressure increased [Unknown]
  - Stress [Unknown]
  - Anxiety [Unknown]
  - Agitation [Unknown]
